FAERS Safety Report 13778686 (Version 2)
Quarter: 2017Q3

REPORT INFORMATION
  Report Type: Report from Study
  Country: US (occurrence: US)
  Receive Date: 20170721
  Receipt Date: 20170802
  Transmission Date: 20171127
  Serious: No
  Sender: FDA-Public Use
  Company Number: US-BRISTOL-MYERS SQUIBB COMPANY-BMS-2017-062297

PATIENT
  Sex: Male

DRUGS (1)
  1. ABATACEPT [Suspect]
     Active Substance: ABATACEPT
     Indication: RHEUMATOID ARTHRITIS
     Dosage: 125 MG/ML, QWK
     Route: 058
     Dates: start: 2015

REACTIONS (7)
  - Product storage error [Unknown]
  - Neck pain [Recovering/Resolving]
  - Drug administration error [Unknown]
  - Myalgia [Unknown]
  - Back pain [Unknown]
  - Joint stiffness [Recovered/Resolved]
  - Arthralgia [Recovered/Resolved]
